FAERS Safety Report 23214225 (Version 1)
Quarter: 2023Q4

REPORT INFORMATION
  Report Type: Spontaneous
  Country: US (occurrence: US)
  Receive Date: 20231121
  Receipt Date: 20231121
  Transmission Date: 20240110
  Serious: No
  Sender: FDA-Public Use
  Company Number: US-PFIZER INC-PV202300189630

PATIENT
  Age: 62 Year
  Sex: Female

DRUGS (2)
  1. TESSALON [Suspect]
     Active Substance: BENZONATATE
     Indication: Cough
     Dosage: UNK
  2. TESSALON [Suspect]
     Active Substance: BENZONATATE
     Indication: Wheezing

REACTIONS (1)
  - Drug ineffective [Unknown]
